FAERS Safety Report 24132084 (Version 1)
Quarter: 2024Q3

REPORT INFORMATION
  Report Type: Spontaneous
  Country: GB (occurrence: GB)
  Receive Date: 20240724
  Receipt Date: 20240724
  Transmission Date: 20241016
  Serious: Yes (Hospitalization)
  Sender: PFIZER
  Company Number: GB-PFIZER INC-PV202400077134

PATIENT
  Age: 80 Year
  Sex: Female

DRUGS (17)
  1. IBRANCE [Suspect]
     Active Substance: PALBOCICLIB
     Indication: Breast cancer
     Dosage: 100 MG, DAILY (3WEEKS  ON, 1 WEEK OFF)
     Route: 048
  2. NEUPRO [Concomitant]
     Active Substance: ROTIGOTINE
     Indication: Parkinson^s disease
     Dosage: 4 MG (DAILY AT 9AM)
  3. ACETAMINOPHEN [Concomitant]
     Active Substance: ACETAMINOPHEN
     Indication: Pain
     Dosage: 500 MG X8
  4. OXYCODONE HYDROCHLORIDE [Concomitant]
     Active Substance: OXYCODONE HYDROCHLORIDE
     Indication: Pain
     Dosage: 15 MG EVERY 12 HOURS
  5. AMITRIPTYLINE [Concomitant]
     Active Substance: AMITRIPTYLINE
     Indication: Pain
     Dosage: 10 MG X4
  6. GABAPENTIN [Concomitant]
     Active Substance: GABAPENTIN
     Indication: Pain
     Dosage: 300 MG X3
  7. LETROZOLE [Concomitant]
     Active Substance: LETROZOLE
     Indication: Bone cancer
     Dosage: 2.5 MG
  8. DENOSUMAB [Concomitant]
     Active Substance: DENOSUMAB
     Indication: Neoplasm malignant
     Dosage: 4 WEEKLY
  9. ASPIRIN [Concomitant]
     Active Substance: ASPIRIN
     Indication: Neoplasm malignant
     Dosage: 75 MG
  10. AMLODIPINE [Concomitant]
     Active Substance: AMLODIPINE BESYLATE
     Indication: Hypertension
     Dosage: 10 MG
  11. DOXAZOSIN [Concomitant]
     Active Substance: DOXAZOSIN MESYLATE
     Indication: Hypertension
     Dosage: 4 MG
  12. ATORVASTATIN [Concomitant]
     Active Substance: ATORVASTATIN
     Indication: Hypertension
     Dosage: 20 MG
  13. FEROGLOBIN [COPPER SULFATE;FERROUS FUMARATE;FOLIC ACID;PYRIDOXINE HYDR [Concomitant]
     Indication: Essential thrombocythaemia
  14. OMEPRAZOLE [Concomitant]
     Active Substance: OMEPRAZOLE
     Indication: Dyspepsia
     Dosage: 20 MG
  15. CALCIUM CARBONATE\CHOLECALCIFEROL [Concomitant]
     Active Substance: CALCIUM CARBONATE\CHOLECALCIFEROL
     Indication: Calcium deficiency
  16. GELCLAIR [Concomitant]
     Dosage: ORAL RINSE (AS REQUIRED)
  17. HYCOSAN [Concomitant]
     Dosage: EXTRA DROPS (AM AND PM)

REACTIONS (1)
  - Blood potassium increased [Recovered/Resolved]

NARRATIVE: CASE EVENT DATE: 20240515
